FAERS Safety Report 5837654-9 (Version None)
Quarter: 2008Q3

REPORT INFORMATION
  Report Type: 
  Country: None (occurrence: None)
  Receive Date: 20080807
  Receipt Date: 20080729
  Transmission Date: 20090109
  Serious: Yes (Hospitalization)
  Sender: FDA-Public Use
  Company Number: DE-AMGEN-UK298262

PATIENT
  Age: 50 Year
  Sex: Female

DRUGS (4)
  1. KINERET [Suspect]
     Indication: RHEUMATOID ARTHRITIS
     Route: 065
     Dates: start: 20030101, end: 20030601
  2. METHOTREXATE [Concomitant]
  3. LEFLUNOMIDE [Concomitant]
     Route: 065
  4. RITUXIMAB [Concomitant]

REACTIONS (1)
  - KNEE ARTHROPLASTY [None]
